FAERS Safety Report 9219327 (Version 1)
Quarter: 2013Q1

REPORT INFORMATION
  Report Type: Spontaneous
  Country: US (occurrence: None)
  Receive Date: 20120827
  Receipt Date: 20120827
  Transmission Date: 20140127
  Serious: Yes (Hospitalization, Other)
  Sender: FDA-Public Use
  Company Number: 356227

PATIENT
  Age: 61 Year
  Sex: Male
  Weight: 149.7 kg

DRUGS (1)
  1. VICTOZA (LIRAGLUTIDE) SOLUTION FOR INJECTION, 6 MG/ML [Suspect]
     Indication: TYPE 2 DIABETES MELLITUS
     Route: 058
     Dates: start: 20120513, end: 20120519

REACTIONS (5)
  - Renal failure [None]
  - Dehydration [None]
  - Diarrhoea [None]
  - Clostridium test positive [None]
  - Abdominal pain [None]
